FAERS Safety Report 23448623 (Version 10)
Quarter: 2024Q4

REPORT INFORMATION
  Report Type: Spontaneous
  Country: US (occurrence: US)
  Receive Date: 20240127
  Receipt Date: 20241126
  Transmission Date: 20250114
  Serious: Yes (Hospitalization)
  Sender: TRAVERE THERAPEUTICS
  Company Number: US-TRAVERE-2023TVT00906

PATIENT
  Age: 63 Year
  Sex: Male

DRUGS (5)
  1. FILSPARI [Suspect]
     Active Substance: SPARSENTAN
     Indication: IgA nephropathy
     Dosage: 200 MG
     Route: 048
     Dates: start: 202308
  2. FILSPARI [Suspect]
     Active Substance: SPARSENTAN
     Indication: Proteinuria
     Dosage: EXPIRATION DATE: 31-AUG-2025
     Route: 048
     Dates: start: 202308
  3. FILSPARI [Suspect]
     Active Substance: SPARSENTAN
     Indication: Chronic kidney disease
  4. FILSPARI [Suspect]
     Active Substance: SPARSENTAN
     Indication: Haematuria
  5. NIFEDIPINE [Concomitant]
     Active Substance: NIFEDIPINE

REACTIONS (14)
  - Hospitalisation [Unknown]
  - Insomnia [Unknown]
  - Somnolence [None]
  - Mood swings [Unknown]
  - Peripheral swelling [Recovered/Resolved]
  - Arthralgia [Unknown]
  - Gait inability [None]
  - Paraesthesia [Unknown]
  - Hypoaesthesia [None]
  - Muscle spasms [None]
  - Cough [None]
  - Blood potassium increased [Unknown]
  - Fatigue [Unknown]
  - Asthenia [Unknown]

NARRATIVE: CASE EVENT DATE: 20231220
